FAERS Safety Report 23627584 (Version 9)
Quarter: 2025Q1

REPORT INFORMATION
  Report Type: Report from Study
  Country: CO (occurrence: CO)
  Receive Date: 20240313
  Receipt Date: 20250227
  Transmission Date: 20250409
  Serious: No
  Sender: TAKEDA
  Company Number: CO-TAKEDA-2021TUS034380

PATIENT
  Age: 38 Year
  Sex: Female
  Weight: 63 kg

DRUGS (9)
  1. ICATIBANT [Suspect]
     Active Substance: ICATIBANT ACETATE
     Indication: Hereditary angioedema
  2. ICATIBANT [Suspect]
     Active Substance: ICATIBANT ACETATE
     Indication: Immune system disorder
  3. ICATIBANT [Suspect]
     Active Substance: ICATIBANT ACETATE
  4. ICATIBANT [Suspect]
     Active Substance: ICATIBANT ACETATE
     Dosage: 1 DOSAGE FORM, Q6HR
  5. ICATIBANT [Suspect]
     Active Substance: ICATIBANT ACETATE
  6. TAKHZYRO [Suspect]
     Active Substance: LANADELUMAB-FLYO
     Indication: Hereditary angioedema
     Dosage: 300 MILLIGRAM, MONTHLY
  7. TAKHZYRO [Suspect]
     Active Substance: LANADELUMAB-FLYO
     Dosage: 300 MILLIGRAM, Q2WEEKS
  8. TAKHZYRO [Suspect]
     Active Substance: LANADELUMAB-FLYO
     Dosage: 300 MILLIGRAM, MONTHLY
  9. TAKHZYRO [Suspect]
     Active Substance: LANADELUMAB-FLYO

REACTIONS (26)
  - Administration site pain [Recovering/Resolving]
  - Administration site inflammation [Recovering/Resolving]
  - Toothache [Unknown]
  - Treatment noncompliance [Unknown]
  - Weight decreased [Unknown]
  - Influenza [Recovering/Resolving]
  - Cough [Recovering/Resolving]
  - Malaise [Recovering/Resolving]
  - Weight increased [Recovered/Resolved]
  - Skin exfoliation [Recovering/Resolving]
  - Inflammation [Recovered/Resolved]
  - Suspected COVID-19 [Unknown]
  - Rhinorrhoea [Unknown]
  - Oropharyngeal pain [Unknown]
  - Conjunctivitis [Recovering/Resolving]
  - Productive cough [Unknown]
  - Stress [Unknown]
  - Product dose omission issue [Unknown]
  - Product use issue [Unknown]
  - Arthralgia [Recovered/Resolved]
  - Pain in extremity [Recovered/Resolved]
  - Anxiety [Unknown]
  - Depressed mood [Unknown]
  - Fear [Unknown]
  - Nasal congestion [Unknown]
  - Hereditary angioedema [Recovered/Resolved]

NARRATIVE: CASE EVENT DATE: 20211021
